FAERS Safety Report 22941276 (Version 3)
Quarter: 2023Q4

REPORT INFORMATION
  Report Type: Spontaneous
  Country: JP (occurrence: JP)
  Receive Date: 20230913
  Receipt Date: 20231124
  Transmission Date: 20240110
  Serious: Yes (Death, Hospitalization)
  Sender: FDA-Public Use
  Company Number: JP-BAYER-2023A079955

PATIENT
  Age: 61 Year
  Sex: Female
  Weight: 49.887 kg

DRUGS (28)
  1. VENTAVIS [Suspect]
     Active Substance: ILOPROST
     Indication: Pulmonary arterial hypertension
     Dosage: 5 UG, 6ID
     Route: 055
     Dates: start: 20180201, end: 20190730
  2. VENTAVIS [Suspect]
     Active Substance: ILOPROST
     Dosage: 5 UG, 6ID
     Route: 055
     Dates: start: 20180206, end: 20190720
  3. OPSUMIT [Suspect]
     Active Substance: MACITENTAN
     Indication: Pulmonary arterial hypertension
     Dosage: 10 MG, QD
     Route: 065
     Dates: end: 20200112
  4. ADCIRCA [Suspect]
     Active Substance: TADALAFIL
     Indication: Pulmonary arterial hypertension
     Dosage: 40 MG, QD
     Route: 065
     Dates: end: 20200112
  5. FUROSEMIDE [Concomitant]
     Active Substance: FUROSEMIDE
     Dosage: 10 MG, QD
     Dates: end: 20200112
  6. SPIRONOLACTONE [Concomitant]
     Active Substance: SPIRONOLACTONE
     Dosage: 25 MG, QD
     Dates: start: 20170216, end: 20200112
  7. UPTRAVI [Concomitant]
     Active Substance: SELEXIPAG
     Dosage: 0.2 MG, UNK
     Route: 048
     Dates: start: 20170206, end: 20170212
  8. UPTRAVI [Concomitant]
     Active Substance: SELEXIPAG
     Dosage: 0.4 MG
     Route: 048
     Dates: start: 20170213, end: 20170219
  9. UPTRAVI [Concomitant]
     Active Substance: SELEXIPAG
     Dosage: 0.6 MG
     Route: 048
     Dates: start: 20170220, end: 20170226
  10. UPTRAVI [Concomitant]
     Active Substance: SELEXIPAG
     Dosage: 0.8 MG
     Route: 048
     Dates: start: 20170227, end: 20170305
  11. UPTRAVI [Concomitant]
     Active Substance: SELEXIPAG
     Dosage: 1 MG
     Route: 048
     Dates: start: 20170306, end: 20170312
  12. UPTRAVI [Concomitant]
     Active Substance: SELEXIPAG
     Dosage: 1.2 MG
     Route: 048
     Dates: start: 20170313, end: 20170320
  13. UPTRAVI [Concomitant]
     Active Substance: SELEXIPAG
     Dosage: 1.4 MG
     Route: 048
     Dates: start: 20170321, end: 20170326
  14. UPTRAVI [Concomitant]
     Active Substance: SELEXIPAG
     Dosage: 3.2 MG, QD
     Route: 048
     Dates: start: 20170327, end: 20190812
  15. UPTRAVI [Concomitant]
     Active Substance: SELEXIPAG
     Dosage: 0.2 MG, QD
     Route: 048
  16. UPTRAVI [Concomitant]
     Active Substance: SELEXIPAG
     Dosage: 1.6 MG, QD
     Route: 048
  17. UPTRAVI [Concomitant]
     Active Substance: SELEXIPAG
     Dosage: .2 MG, UNK
     Route: 048
  18. UPTRAVI [Concomitant]
     Active Substance: SELEXIPAG
     Dosage: 1.2 MG, BID
     Route: 048
     Dates: start: 20190813, end: 20190829
  19. UPTRAVI [Concomitant]
     Active Substance: SELEXIPAG
     Dosage: 1 MG
     Route: 048
     Dates: start: 20190830, end: 20190926
  20. UPTRAVI [Concomitant]
     Active Substance: SELEXIPAG
     Dosage: 0.8 MG
     Route: 048
     Dates: start: 20190927, end: 20191128
  21. UPTRAVI [Concomitant]
     Active Substance: SELEXIPAG
     Dosage: 0.6 MG
     Route: 048
     Dates: start: 20191129, end: 20191130
  22. TOCOPHERYL NICOTINATE [Concomitant]
     Active Substance: TOCOPHERYL NICOTINATE, D-.ALPHA.
     Dosage: 600 MG, QD
     Dates: end: 20200112
  23. BROTIZOLAM [Concomitant]
     Active Substance: BROTIZOLAM
     Dosage: .25 MG, QD
     Dates: end: 20200112
  24. URSO [Concomitant]
     Active Substance: URSODIOL
     Dosage: 150 MG, QD
     Dates: start: 20170724, end: 20200112
  25. TOLVAPTAN [Concomitant]
     Active Substance: TOLVAPTAN
     Dosage: 15 MG
  26. TOLVAPTAN [Concomitant]
     Active Substance: TOLVAPTAN
     Dosage: 15 MG
  27. TOLVAPTAN [Concomitant]
     Active Substance: TOLVAPTAN
     Dosage: 15 MG
  28. OXYGEN [Concomitant]
     Active Substance: OXYGEN
     Indication: Pulmonary arterial hypertension

REACTIONS (3)
  - Anaemia [Fatal]
  - Lung disorder [Fatal]
  - Pulmonary arterial pressure increased [Unknown]

NARRATIVE: CASE EVENT DATE: 20190710
